FAERS Safety Report 4985656-7 (Version None)
Quarter: 2006Q2

REPORT INFORMATION
  Report Type: 
  Country: None (occurrence: None)
  Receive Date: 20060428
  Receipt Date: 20050308
  Transmission Date: 20061013
  Serious: No
  Sender: FDA-Public Use
  Company Number: US-GLAXOSMITHKLINE-A0548818A

PATIENT
  Age: 39 Year
  Sex: Female
  Weight: 77.3 kg

DRUGS (18)
  1. ZOFRAN [Suspect]
     Indication: PROPHYLAXIS
     Route: 042
     Dates: start: 20050305, end: 20050305
  2. ZOFRAN [Concomitant]
     Dosage: 8MG TWICE PER DAY
     Route: 048
  3. DOXORUBICIN HCL [Concomitant]
     Indication: BREAST CANCER
     Dosage: 115MG SEE DOSAGE TEXT
     Route: 042
     Dates: start: 20050121, end: 20050401
  4. CYCLOPHOSPHAMIDE [Concomitant]
     Indication: BREAST CANCER
     Dosage: 115MG SEE DOSAGE TEXT
     Route: 042
     Dates: start: 20050121, end: 20050401
  5. NEULASTA [Concomitant]
     Indication: BREAST CANCER
     Dosage: 6MG SEE DOSAGE TEXT
     Route: 042
     Dates: start: 20050122, end: 20050402
  6. NEURONTIN [Concomitant]
     Dosage: 300MG THREE TIMES PER DAY
     Route: 048
  7. LORTAB [Concomitant]
     Route: 048
  8. COUMADIN [Concomitant]
     Dosage: 1MG PER DAY
     Route: 048
  9. PREVACID [Concomitant]
     Dosage: 30MG PER DAY
     Route: 048
  10. VALIUM [Concomitant]
     Dosage: 2MG AS REQUIRED
     Route: 048
  11. PERCOCET [Concomitant]
     Route: 048
  12. ZOLOFT [Concomitant]
     Dosage: 100MG PER DAY
     Route: 048
  13. XANAX [Concomitant]
     Dosage: .25MG AS REQUIRED
     Route: 048
  14. BACTRIM [Concomitant]
     Route: 048
  15. LIDOCAINE [Concomitant]
     Route: 061
  16. DEXAMETHASONE [Concomitant]
     Route: 048
  17. REGLAN [Concomitant]
     Route: 048
  18. COMPAZINE [Concomitant]
     Dosage: 25MG AS REQUIRED
     Route: 054

REACTIONS (1)
  - HEADACHE [None]
